FAERS Safety Report 6431855-7 (Version None)
Quarter: 2009Q4

REPORT INFORMATION
  Report Type: 
  Country: None (occurrence: None)
  Receive Date: 20091108
  Receipt Date: 20091027
  Transmission Date: 20100525
  Serious: Yes (Hospitalization, Other)
  Sender: FDA-Public Use
  Company Number: PHEH2009US12957

PATIENT
  Sex: Female
  Weight: 57.143 kg

DRUGS (18)
  1. EXJADE [Suspect]
     Indication: MYELODYSPLASTIC SYNDROME
     Dosage: 1250 MG DAILY
     Route: 048
     Dates: start: 20090901, end: 20091005
  2. EXJADE [Suspect]
     Indication: IRON OVERLOAD
  3. AMBIEN [Concomitant]
     Dosage: 10 MG, QHS
     Route: 048
  4. AMLODIPINE [Concomitant]
     Dosage: 10 MG, QD
     Route: 048
  5. ARANESP [Concomitant]
     Dosage: 1 ML, Q2WEEKS
     Route: 058
  6. ASPIRIN [Concomitant]
     Dosage: 81 MG, QD
     Route: 048
  7. DRISDOL [Concomitant]
     Dosage: 50000 U, QMO
     Route: 048
  8. ENALAPRIL [Concomitant]
     Dosage: 20 MG, BID
     Route: 048
  9. FLONASE [Concomitant]
  10. FOLIC ACID [Concomitant]
     Dosage: 1 MG, QD
     Route: 048
  11. HYDRALAZINE HCL [Concomitant]
     Dosage: 25 MG, BID
     Route: 048
  12. LABETALOL HCL [Concomitant]
     Dosage: 100 MG, TID
     Route: 048
  13. LASIX [Concomitant]
     Dosage: 40 MG, QD
     Route: 048
  14. MAGNESIUM [Concomitant]
     Dosage: 400 MG, QD
     Route: 048
  15. PHOSLO [Concomitant]
     Dosage: 667 MG, TID
     Route: 048
  16. PREDNISONE [Concomitant]
     Dosage: 5 MG, QD
     Route: 048
  17. PROTONIX [Concomitant]
     Dosage: 40 MG, QD
     Route: 048
  18. XANAX [Concomitant]
     Dosage: 0.25 MG, TID PRN
     Route: 048

REACTIONS (4)
  - MASTOIDITIS [None]
  - RENAL IMPAIRMENT [None]
  - VAGINAL DISCHARGE [None]
  - VULVOVAGINAL DISCOMFORT [None]
